FAERS Safety Report 25045189 (Version 2)
Quarter: 2025Q1

REPORT INFORMATION
  Report Type: Spontaneous
  Country: US (occurrence: US)
  Receive Date: 20250306
  Receipt Date: 20250326
  Transmission Date: 20250409
  Serious: Yes (Other)
  Sender: IPSEN BIOPHARMACEUTICALS, INC.
  Company Number: US-IPSEN Group, Research and Development-2025-04899

PATIENT
  Age: 41 Year
  Sex: Female
  Weight: 57.6 kg

DRUGS (5)
  1. IQIRVO [Suspect]
     Active Substance: ELAFIBRANOR
     Indication: Dermatitis atopic
     Route: 048
     Dates: start: 20240906
  2. IQIRVO [Suspect]
     Active Substance: ELAFIBRANOR
     Indication: Off label use
  3. URSODIOL [Concomitant]
     Active Substance: URSODIOL
  4. MYFORTIC [Concomitant]
     Active Substance: MYCOPHENOLATE SODIUM
  5. DUPIXENT [Concomitant]
     Active Substance: DUPILUMAB

REACTIONS (2)
  - Renal impairment [Unknown]
  - Off label use [Unknown]

NARRATIVE: CASE EVENT DATE: 20240909
